FAERS Safety Report 19183909 (Version 1)
Quarter: 2021Q2

REPORT INFORMATION
  Report Type: Spontaneous
  Country: US (occurrence: US)
  Receive Date: 20210427
  Receipt Date: 20210427
  Transmission Date: 20210717
  Serious: No
  Sender: FDA-Public Use
  Company Number: US-ALLERGAN-2040721US

PATIENT
  Age: 14 Year
  Sex: Female

DRUGS (2)
  1. TAYTULLA [Suspect]
     Active Substance: ETHINYL ESTRADIOL\NORETHINDRONE ACETATE
     Indication: MENSTRUATION IRREGULAR
     Dosage: UNK, QD
     Route: 048
     Dates: start: 20201011, end: 20201018
  2. MIDOL [Concomitant]
     Active Substance: IBUPROFEN

REACTIONS (7)
  - Mood swings [Recovered/Resolved]
  - Vomiting [Recovered/Resolved]
  - Anxiety [Recovered/Resolved]
  - Nausea [Recovered/Resolved]
  - Stress [Recovered/Resolved]
  - Off label use [Unknown]
  - Depression [Recovered/Resolved]

NARRATIVE: CASE EVENT DATE: 20201011
